FAERS Safety Report 20102318 (Version 2)
Quarter: 2021Q4

REPORT INFORMATION
  Report Type: Report from Study
  Country: US (occurrence: US)
  Receive Date: 20211123
  Receipt Date: 20211224
  Transmission Date: 20220303
  Serious: Yes (Other)
  Sender: FDA-Public Use
  Company Number: US-UCBSA-2021053813

PATIENT
  Age: 68 Year
  Sex: Female
  Weight: 65.7 kg

DRUGS (1)
  1. BRIVARACETAM [Suspect]
     Active Substance: BRIVARACETAM
     Indication: Seizure
     Dosage: 50MG-2 TABS AND 1 TAB IN PM

REACTIONS (5)
  - Liver transplant [Not Recovered/Not Resolved]
  - Hepatic steatosis [Unknown]
  - Fatigue [Unknown]
  - Nausea [Unknown]
  - Product use issue [Unknown]

NARRATIVE: CASE EVENT DATE: 20210211
